FAERS Safety Report 9149506 (Version 1)
Quarter: 2013Q1

REPORT INFORMATION
  Report Type: Spontaneous
  Country: US (occurrence: US)
  Receive Date: 20130308
  Receipt Date: 20130308
  Transmission Date: 20140127
  Serious: No
  Sender: FDA-Public Use
  Company Number: US-ENDO PHARMACEUTICALS INC.-OPCR20120072

PATIENT
  Age: 49 None
  Sex: Female

DRUGS (4)
  1. OPANA ER [Suspect]
     Indication: PAIN
     Route: 048
     Dates: start: 20120329
  2. CYMBALTA [Suspect]
     Indication: DEPRESSION
     Route: 048
  3. OXYCODONE [Suspect]
     Indication: PAIN
     Route: 048
  4. OPANA ER [Concomitant]
     Indication: PAIN
     Route: 048
     Dates: start: 2007, end: 201203

REACTIONS (3)
  - Infection [Recovering/Resolving]
  - Nausea [Unknown]
  - Local swelling [Not Recovered/Not Resolved]
